FAERS Safety Report 22260103 (Version 1)
Quarter: 2023Q2

REPORT INFORMATION
  Report Type: Spontaneous
  Country: US (occurrence: US)
  Receive Date: 20230427
  Receipt Date: 20230427
  Transmission Date: 20230722
  Serious: No
  Sender: FDA-Public Use
  Company Number: US-MYOVANT SCIENCES GMBH-2023MYSCI0200776

PATIENT
  Age: 71 Year
  Sex: Male

DRUGS (2)
  1. ORGOVYX [Suspect]
     Active Substance: RELUGOLIX
     Indication: Prostate cancer
     Dosage: UNK UNK, TID
     Route: 065
     Dates: start: 20230128, end: 20230128
  2. ORGOVYX [Suspect]
     Active Substance: RELUGOLIX
     Dosage: UNK, QD
     Route: 065
     Dates: start: 20230129

REACTIONS (2)
  - Therapy interrupted [Not Recovered/Not Resolved]
  - Incorrect dose administered [Recovered/Resolved]

NARRATIVE: CASE EVENT DATE: 20230128
